FAERS Safety Report 7322702-X (Version None)
Quarter: 2011Q1

REPORT INFORMATION
  Report Type: 
  Country: None (occurrence: None)
  Receive Date: 20110301
  Receipt Date: 20100315
  Transmission Date: 20110831
  Serious: Yes (Other)
  Sender: FDA-Public Use
  Company Number: US-PFIZER INC-2010009800

PATIENT
  Sex: Female
  Weight: 107 kg

DRUGS (9)
  1. AMLODIPINE [Concomitant]
     Dosage: 10 MG, UNK
  2. XALATAN [Concomitant]
     Dosage: UNK
     Route: 047
  3. DORZOLAMIDE HYDROCHLORIDE AND TIMOLOL MALEATE [Concomitant]
     Dosage: UNK
  4. GLIPIZIDE [Suspect]
     Indication: DIABETES MELLITUS
     Dosage: 5 MG, 2X/DAY
     Route: 048
     Dates: start: 20070731
  5. ACTOS [Concomitant]
     Dosage: 45 MG, UNK
  6. VALSARTAN [Concomitant]
     Dosage: UNK
  7. WELCHOL [Concomitant]
     Dosage: UNK
  8. HYDROCHLOROTHIAZIDE [Concomitant]
     Dosage: UNK
  9. LISINOPRIL [Concomitant]
     Dosage: 30 MG, UNK

REACTIONS (1)
  - DIABETES MELLITUS INADEQUATE CONTROL [None]
